FAERS Safety Report 6255903-2 (Version None)
Quarter: 2009Q3

REPORT INFORMATION
  Report Type: 
  Country: None (occurrence: None)
  Receive Date: 20090703
  Receipt Date: 20090622
  Transmission Date: 20100115
  Serious: Yes (Other)
  Sender: FDA-Public Use
  Company Number: US-MYLANLABS-2009S1008896

PATIENT
  Age: 51 Year
  Sex: Female

DRUGS (8)
  1. CLOZAPINE [Suspect]
     Indication: SCHIZOPHRENIA
     Route: 048
     Dates: end: 20090401
  2. CLOZAPINE [Suspect]
     Route: 048
     Dates: start: 20090501
  3. RISPERIDONE [Concomitant]
  4. FAMOTIDINE [Concomitant]
  5. LITHIUM [Concomitant]
     Dosage: 300MG QAM, 600MG AT BEDTIME
  6. TEMAZEPAM [Concomitant]
  7. HEPSERA [Concomitant]
  8. VIREAD [Concomitant]

REACTIONS (2)
  - GRANULOCYTOPENIA [None]
  - INFLUENZA [None]
